FAERS Safety Report 5572930-9 (Version None)
Quarter: 2007Q4

REPORT INFORMATION
  Report Type: 
  Country: None (occurrence: None)
  Receive Date: 20071220
  Receipt Date: 20071220
  Transmission Date: 20080405
  Serious: No
  Sender: FDA-Public Use
  Company Number: None

PATIENT
  Age: 28 Year
  Sex: Female
  Weight: 58.9676 kg

DRUGS (1)
  1. K-Y BRAND TOUCH MASSAGE OIL, BAILI MANLIGHT [Suspect]
     Indication: MASSAGE
     Dosage: TOPICAL
     Route: 061
     Dates: start: 20071107

REACTIONS (1)
  - ANAPHYLACTIC SHOCK [None]
